FAERS Safety Report 19834454 (Version 3)
Quarter: 2021Q3

REPORT INFORMATION
  Report Type: Report from Study
  Country: US (occurrence: US)
  Receive Date: 20210914
  Receipt Date: 20210924
  Transmission Date: 20211014
  Serious: Yes (Death)
  Sender: FDA-Public Use
  Company Number: US-JNJFOC-20210912679

PATIENT
  Age: 40 Year
  Sex: Male

DRUGS (3)
  1. SPRAVATO [Suspect]
     Active Substance: ESKETAMINE
     Dates: start: 20210902, end: 20210902
  2. CLONIDINE. [Concomitant]
     Active Substance: CLONIDINE
     Dosage: 1?2 TIMES DAILY; DOSE RECENTLY REDUCED
  3. SPRAVATO [Suspect]
     Active Substance: ESKETAMINE
     Indication: DEPRESSION
     Dosage: 56 MG, 6 DOSES
     Dates: start: 20210809, end: 20210831

REACTIONS (2)
  - Road traffic accident [Fatal]
  - Sedation [Recovered/Resolved]

NARRATIVE: CASE EVENT DATE: 20210902
